FAERS Safety Report 17957412 (Version 2)
Quarter: 2021Q2

REPORT INFORMATION
  Report Type: Spontaneous
  Country: JP (occurrence: JP)
  Receive Date: 20200629
  Receipt Date: 20210602
  Transmission Date: 20210717
  Serious: Yes (Death, Hospitalization)
  Sender: FDA-Public Use
  Company Number: JP-ELI_LILLY_AND_COMPANY-JP202006011657

PATIENT
  Age: 75 Year
  Sex: Male
  Weight: 40 kg

DRUGS (26)
  1. ADCIRCA [Suspect]
     Active Substance: TADALAFIL
     Indication: PULMONARY ARTERIAL HYPERTENSION
  2. UPTRAVI [Suspect]
     Active Substance: SELEXIPAG
     Dosage: 0.4 MG, BID
     Route: 048
     Dates: start: 20180504, end: 20180605
  3. OPSUMIT [Concomitant]
     Active Substance: MACITENTAN
     Indication: PULMONARY HYPERTENSION
     Dosage: 10 MG
     Dates: start: 20180605
  4. VITAMINS NOS [Concomitant]
     Active Substance: VITAMINS
     Indication: PERIPHERAL ARTERIAL OCCLUSIVE DISEASE
     Dosage: 15 UG, UNKNOWN
     Dates: start: 20150925
  5. UPTRAVI [Suspect]
     Active Substance: SELEXIPAG
     Dosage: 0.8 MG, BID
     Route: 048
     Dates: start: 20190521, end: 202104
  6. ROZEREM [Concomitant]
     Active Substance: RAMELTEON
     Indication: INSOMNIA
     Dosage: 8 MG
     Dates: start: 20120525
  7. MIYA?BM [Concomitant]
     Active Substance: CLOSTRIDIUM BUTYRICUM SPORES STRAIN M-55
     Indication: GASTROINTESTINAL MOTILITY DISORDER
     Dosage: 60 MG
     Dates: start: 20150109
  8. ADCIRCA [Suspect]
     Active Substance: TADALAFIL
     Indication: PULMONARY HYPERTENSION
     Dosage: 40 MG, UNKNOWN
     Route: 065
     Dates: start: 20180605
  9. THEOLONG [Concomitant]
     Active Substance: THEOPHYLLINE ANHYDROUS
     Indication: CHRONIC OBSTRUCTIVE PULMONARY DISEASE
     Dosage: 200 MG
     Dates: start: 20120605
  10. FAMOTIDINE. [Concomitant]
     Active Substance: FAMOTIDINE
     Indication: CHRONIC GASTRITIS
     Dosage: 40 MG, UNKNOWN
     Dates: start: 20120112, end: 20190419
  11. UPTRAVI [Suspect]
     Active Substance: SELEXIPAG
     Indication: PULMONARY HYPERTENSION
     Dosage: 0.2 MG, BID
     Route: 048
     Dates: start: 20170804, end: 20170817
  12. REVATIO [Concomitant]
     Active Substance: SILDENAFIL CITRATE
     Indication: PULMONARY HYPERTENSION
     Dosage: 60 MG
     Dates: start: 20120610
  13. LENDORMIN D [Concomitant]
     Active Substance: BROTIZOLAM
     Indication: INSOMNIA
     Dosage: 0.25 MG
     Dates: start: 20180605
  14. NEXIUM [ESOMEPRAZOLE MAGNESIUM TRIHYDRATE] [Concomitant]
     Indication: CHRONIC GASTRITIS
     Dosage: 10 MG
     Dates: start: 20190521
  15. UPTRAVI [Suspect]
     Active Substance: SELEXIPAG
     Dosage: 0.6 MG, BID
     Route: 048
     Dates: start: 20180415, end: 20180503
  16. UPTRAVI [Suspect]
     Active Substance: SELEXIPAG
     Dosage: 0.2 MG, BID
     Route: 048
     Dates: start: 20170901, end: 20171110
  17. UPTRAVI [Suspect]
     Active Substance: SELEXIPAG
     Dosage: 0.4 MG, BID
     Route: 048
     Dates: start: 20171111, end: 20180414
  18. TRACLEER [Concomitant]
     Active Substance: BOSENTAN
     Indication: PULMONARY HYPERTENSION
     Dosage: 187.5 MG
     Dates: start: 20120605
  19. SPIRIVA [Concomitant]
     Active Substance: TIOTROPIUM BROMIDE MONOHYDRATE
     Indication: CHRONIC OBSTRUCTIVE PULMONARY DISEASE
     Dosage: 5 UG
     Dates: start: 20120605
  20. CLEANAL [Concomitant]
     Active Substance: FUDOSTEINE
     Indication: CHRONIC OBSTRUCTIVE PULMONARY DISEASE
     Dosage: 800 MG
     Dates: start: 20120622
  21. HOKUNALIN [TULOBUTEROL] [Concomitant]
     Active Substance: TULOBUTEROL
     Indication: CHRONIC OBSTRUCTIVE PULMONARY DISEASE
     Dosage: 2 MG
     Dates: start: 20120612
  22. UPTRAVI [Suspect]
     Active Substance: SELEXIPAG
     Indication: PULMONARY ARTERIAL HYPERTENSION
     Dosage: 0.4 MG, BID
     Route: 048
     Dates: start: 20170818, end: 20170831
  23. UPTRAVI [Suspect]
     Active Substance: SELEXIPAG
     Dosage: 0.2 MG, BID
     Route: 048
     Dates: start: 20180605, end: 20190419
  24. ADOAIR [Concomitant]
     Active Substance: FLUTICASONE PROPIONATE\SALMETEROL XINAFOATE
     Indication: CHRONIC OBSTRUCTIVE PULMONARY DISEASE
     Dosage: 500 UG
     Dates: start: 20120605
  25. GOSHAJINKIGAN [Concomitant]
     Active Substance: HERBALS
     Indication: NEUROPATHY PERIPHERAL
     Dosage: 7.5 G
     Dates: start: 20150306
  26. ZYLORIC [Concomitant]
     Active Substance: ALLOPURINOL
     Indication: HYPERURICAEMIA
     Dosage: 100 MG
     Dates: start: 20120605, end: 20190419

REACTIONS (2)
  - Pulmonary arterial hypertension [Fatal]
  - Pulmonary arterial hypertension [Recovered/Resolved]

NARRATIVE: CASE EVENT DATE: 201904
